FAERS Safety Report 6571978-5 (Version None)
Quarter: 2010Q1

REPORT INFORMATION
  Report Type: 
  Country: None (occurrence: None)
  Receive Date: 20100205
  Receipt Date: 20100125
  Transmission Date: 20100710
  Serious: Yes (Other)
  Sender: FDA-Public Use
  Company Number: GB-ELI_LILLY_AND_COMPANY-GB201001005735

PATIENT
  Age: 85 Year
  Sex: Male

DRUGS (3)
  1. ZYPREXA [Suspect]
     Indication: MANIA
     Dosage: UNK, UNKNOWN
  2. WARFARIN SODIUM [Concomitant]
     Dosage: UNK, UNKNOWN
  3. SIMVASTATIN [Concomitant]
     Dosage: UNK, UNKNOWN

REACTIONS (1)
  - HENOCH-SCHONLEIN PURPURA [None]
